FAERS Safety Report 17924141 (Version 1)
Quarter: 2020Q2

REPORT INFORMATION
  Report Type: Spontaneous
  Country: US (occurrence: US)
  Receive Date: 20200622
  Receipt Date: 20200622
  Transmission Date: 20200714
  Serious: No
  Sender: FDA-Public Use
  Company Number: US-KYOWAKIRIN-2020BKK010198

PATIENT

DRUGS (1)
  1. NOURIANZ [Suspect]
     Active Substance: ISTRADEFYLLINE
     Indication: PARKINSON^S DISEASE
     Dosage: 20 MG DAILY
     Route: 048
     Dates: start: 202003

REACTIONS (5)
  - Increased appetite [Unknown]
  - Irritability [Unknown]
  - Compulsive shopping [Unknown]
  - Dyskinesia [Unknown]
  - Fatigue [Unknown]

NARRATIVE: CASE EVENT DATE: 2020
